FAERS Safety Report 5075177-8 (Version None)
Quarter: 2006Q3

REPORT INFORMATION
  Report Type: 
  Country: None (occurrence: None)
  Receive Date: 20060803
  Receipt Date: 20060803
  Transmission Date: 20061208
  Serious: Yes (Hospitalization)
  Sender: FDA-Public Use
  Company Number: None

PATIENT
  Age: 69 Year
  Sex: Male
  Weight: 97.5234 kg

DRUGS (1)
  1. FLUORESCEIN 25% 2ML AKORN [Suspect]

REACTIONS (1)
  - ANAPHYLACTIC SHOCK [None]
